FAERS Safety Report 4313193-1 (Version None)
Quarter: 2004Q1

REPORT INFORMATION
  Report Type: 
  Country: None (occurrence: None)
  Receive Date: 20040308
  Receipt Date: 20030127
  Transmission Date: 20041129
  Serious: Yes (Death, Hospitalization)
  Sender: FDA-Public Use
  Company Number: PHRM2003FR00610

PATIENT
  Age: 73 Year
  Sex: Male

DRUGS (1)
  1. DESERNIL-SANDOZ [Suspect]
     Indication: HEADACHE
     Dosage: .825 MG, QD
     Route: 048
     Dates: end: 20021029

REACTIONS (6)
  - CARDIO-RESPIRATORY ARREST [None]
  - FACE OEDEMA [None]
  - MULTI-ORGAN FAILURE [None]
  - PERIPHERAL REVASCULARISATION [None]
  - SUPERIOR VENA CAVAL OCCLUSION [None]
  - VENA CAVA INJURY [None]
